FAERS Safety Report 24732162 (Version 1)
Quarter: 2024Q4

REPORT INFORMATION
  Report Type: Spontaneous
  Country: DE (occurrence: DE)
  Receive Date: 20241213
  Receipt Date: 20241213
  Transmission Date: 20250115
  Serious: Yes (Other)
  Sender: TEVA
  Company Number: DE-TEVA-VS-3273895

PATIENT
  Age: 45 Year
  Sex: Male

DRUGS (1)
  1. QUETIAPINE [Suspect]
     Active Substance: QUETIAPINE
     Indication: Product used for unknown indication
     Dosage: ABZ 300 MG RETARDTABLETTEN
     Route: 048
     Dates: start: 20241202

REACTIONS (6)
  - Mental disorder [Unknown]
  - Chest discomfort [Unknown]
  - Tracheal disorder [Unknown]
  - Head discomfort [Unknown]
  - Dry mouth [Unknown]
  - Muscle spasms [Unknown]

NARRATIVE: CASE EVENT DATE: 20241202
